FAERS Safety Report 17568957 (Version 1)
Quarter: 2020Q1

REPORT INFORMATION
  Report Type: Spontaneous
  Country: US (occurrence: US)
  Receive Date: 20200321
  Receipt Date: 20200321
  Transmission Date: 20200409
  Serious: Yes (Hospitalization, Other)
  Sender: FDA-Public Use
  Company Number: NVSC2020US073641

PATIENT
  Age: 81 Year
  Sex: Male
  Weight: 100.9 kg

DRUGS (1)
  1. TISAGENLECLEUCEL. [Suspect]
     Active Substance: TISAGENLECLEUCEL
     Indication: DIFFUSE LARGE B-CELL LYMPHOMA
     Dosage: 1 DF, ONCE/SINGLE
     Route: 042
     Dates: start: 20190903, end: 20190903

REACTIONS (4)
  - Neurotoxicity [Recovered/Resolved]
  - Therapy non-responder [Unknown]
  - Pyrexia [Unknown]
  - Cytokine release syndrome [Recovered/Resolved]

NARRATIVE: CASE EVENT DATE: 20190905
